FAERS Safety Report 6933397-9 (Version None)
Quarter: 2010Q3

REPORT INFORMATION
  Report Type: 
  Country: None (occurrence: None)
  Receive Date: 20100820
  Receipt Date: 20100817
  Transmission Date: 20110219
  Serious: No
  Sender: FDA-Public Use
  Company Number: US-ROXANE LABORATORIES, INC.-2010-RO-01114RO

PATIENT
  Sex: Female

DRUGS (3)
  1. NAPROXEN [Suspect]
     Dosage: 1000 MG
  2. PREDNISONE [Suspect]
     Indication: RHEUMATOID ARTHRITIS
     Dosage: 10 MG
     Route: 048
  3. PLAQUENIL [Concomitant]
     Dosage: 400 MG

REACTIONS (1)
  - FOOT FRACTURE [None]
